FAERS Safety Report 7443812-2 (Version None)
Quarter: 2011Q2

REPORT INFORMATION
  Report Type: 
  Country: None (occurrence: None)
  Receive Date: 20110428
  Receipt Date: 20110412
  Transmission Date: 20111010
  Serious: Yes (Hospitalization, Other)
  Sender: FDA-Public Use
  Company Number: US-AMGEN-USASP2011006660

PATIENT
  Age: 81 Year
  Sex: Female

DRUGS (10)
  1. PREVACID [Concomitant]
  2. PROLIA [Suspect]
     Indication: OSTEOPOROSIS POSTMENOPAUSAL
     Dates: start: 20101223
  3. CLONIDINE [Concomitant]
  4. MULTIVITAMIN                       /00097801/ [Concomitant]
  5. NORVASC [Concomitant]
  6. EVISTA                             /01303201/ [Concomitant]
  7. LEVOTHYROXINE SODIUM [Concomitant]
  8. EYE DROPS [Concomitant]
  9. MOTRIN [Concomitant]
  10. PEPCID [Concomitant]

REACTIONS (10)
  - BLOOD PRESSURE INCREASED [None]
  - VISION BLURRED [None]
  - PAPULE [None]
  - COUGH [None]
  - INJECTION SITE SWELLING [None]
  - INJECTION SITE ERYTHEMA [None]
  - HYPERSENSITIVITY [None]
  - URTICARIA [None]
  - EAR DISCOMFORT [None]
  - PRURITUS [None]
